FAERS Safety Report 4508946-0 (Version None)
Quarter: 2004Q4

REPORT INFORMATION
  Report Type: 
  Country: None (occurrence: None)
  Receive Date: 20041123
  Receipt Date: 20041112
  Transmission Date: 20050328
  Serious: Yes (Death)
  Sender: FDA-Public Use
  Company Number: FR-GLAXOSMITHKLINE-B0357053B

PATIENT
  Sex: Female

DRUGS (1)
  1. CLAMOXYL [Suspect]
     Indication: BETA HAEMOLYTIC STREPTOCOCCAL INFECTION
     Dosage: 2G CUMULATIVE DOSE
     Dates: start: 20041019, end: 20041019

REACTIONS (8)
  - BRADYCARDIA [None]
  - CAESAREAN SECTION [None]
  - DRUG EXPOSURE DURING PREGNANCY [None]
  - FOETAL DISTRESS SYNDROME [None]
  - HYPERSENSITIVITY [None]
  - INTRA-UTERINE DEATH [None]
  - NEONATAL DISORDER [None]
  - RESUSCITATION [None]
